FAERS Safety Report 4453737-2 (Version None)
Quarter: 2004Q3

REPORT INFORMATION
  Report Type: 
  Country: None (occurrence: None)
  Receive Date: 20040920
  Receipt Date: 20040910
  Transmission Date: 20050211
  Serious: Yes (Other)
  Sender: FDA-Public Use
  Company Number: 200418981GDDC

PATIENT
  Age: 63 Year
  Sex: Male

DRUGS (2)
  1. LANTUS [Suspect]
     Indication: DIABETES MELLITUS
     Dosage: DOSE UNIT: UNITS
     Route: 058
     Dates: start: 20040609
  2. RAMIPRIL [Concomitant]
     Indication: HYPERTENSION
     Route: 048

REACTIONS (2)
  - DIZZINESS [None]
  - HYPOTENSION [None]
